FAERS Safety Report 6898713-5 (Version None)
Quarter: 2010Q3

REPORT INFORMATION
  Report Type: 
  Country: None (occurrence: None)
  Receive Date: 20100802
  Receipt Date: 20071117
  Transmission Date: 20110219
  Serious: Yes (Other)
  Sender: FDA-Public Use
  Company Number: US-PFIZER INC-2007097758

PATIENT
  Sex: Female
  Weight: 59.9 kg

DRUGS (3)
  1. LYRICA [Suspect]
     Indication: CONVULSION
     Dates: start: 20071116
  2. TRILEPTAL [Concomitant]
  3. KEPPRA [Concomitant]

REACTIONS (3)
  - DYSARTHRIA [None]
  - DYSTONIA [None]
  - SPEECH DISORDER [None]
